FAERS Safety Report 23839060 (Version 3)
Quarter: 2024Q2

REPORT INFORMATION
  Report Type: Report from Study
  Country: KR (occurrence: KR)
  Receive Date: 20240509
  Receipt Date: 20240604
  Transmission Date: 20240716
  Serious: Yes (Death, Hospitalization)
  Sender: FDA-Public Use
  Company Number: KR-BEIGENE-BGN-2024-006457

PATIENT

DRUGS (4)
  1. TISLELIZUMAB [Suspect]
     Active Substance: TISLELIZUMAB
     Indication: Oesophageal carcinoma
     Dosage: 200 MILLIGRAM
     Dates: start: 20240322, end: 20240322
  2. TISLELIZUMAB [Suspect]
     Active Substance: TISLELIZUMAB
     Dosage: 200 MILLIGRAM
     Dates: start: 20240415, end: 20240415
  3. SYNATURA [Concomitant]
     Indication: Cough
     Dosage: 15 MILLIGRAM, BID
     Route: 048
     Dates: start: 20240418
  4. THEOBROMINE [Concomitant]
     Active Substance: THEOBROMINE
     Indication: Cough
     Dosage: 15 MILLILITER
     Route: 048
     Dates: start: 20240418

REACTIONS (1)
  - Interstitial lung disease [Fatal]

NARRATIVE: CASE EVENT DATE: 20240426
